FAERS Safety Report 20208611 (Version 1)
Quarter: 2021Q4

REPORT INFORMATION
  Report Type: Spontaneous
  Country: CN (occurrence: CN)
  Receive Date: 20211220
  Receipt Date: 20211220
  Transmission Date: 20220303
  Serious: Yes (Death)
  Sender: FDA-Public Use
  Company Number: CN-PFIZER INC-202101733019

PATIENT
  Sex: Male

DRUGS (8)
  1. IRINOTECAN HYDROCHLORIDE [Suspect]
     Active Substance: IRINOTECAN HYDROCHLORIDE
     Indication: Colorectal cancer metastatic
     Dosage: UNK UNK, CYCLIC
  2. OXALIPLATIN [Suspect]
     Active Substance: OXALIPLATIN
     Indication: Colorectal cancer metastatic
     Dosage: UNK UNK, CYCLIC (FOUR CYCLE)
  3. DOCETAXEL [Suspect]
     Active Substance: DOCETAXEL
     Indication: Colorectal cancer metastatic
     Dosage: UNK UNK, CYCLIC
  4. GEMCITABINE [Suspect]
     Active Substance: GEMCITABINE
     Indication: Colorectal cancer metastatic
     Dosage: UNK UNK, CYCLIC
  5. ETOPOSIDE [Suspect]
     Active Substance: ETOPOSIDE
     Indication: Colorectal cancer metastatic
     Dosage: UNK UNK, CYCLIC
  6. BEVACIZUMAB [Suspect]
     Active Substance: BEVACIZUMAB
     Indication: Colorectal cancer metastatic
     Dosage: UNK UNK, CYCLIC
  7. CAPECITABINE [Suspect]
     Active Substance: CAPECITABINE
     Indication: Colorectal cancer metastatic
     Dosage: UNK UNK, CYCLIC (FOUR CYCLES)
  8. VEMURAFENIB [Suspect]
     Active Substance: VEMURAFENIB
     Indication: Colorectal cancer metastatic
     Dosage: UNK UNK, CYCLIC

REACTIONS (3)
  - Vomiting [Fatal]
  - Electrolyte imbalance [Fatal]
  - Nausea [Unknown]
